FAERS Safety Report 6766207-3 (Version None)
Quarter: 2010Q2

REPORT INFORMATION
  Report Type: 
  Country: None (occurrence: None)
  Receive Date: 20100611
  Receipt Date: 20100526
  Transmission Date: 20101027
  Serious: Yes (Disabling)
  Sender: FDA-Public Use
  Company Number: US-TEVA-222792USA

PATIENT
  Sex: Female

DRUGS (2)
  1. FLUCONAZOLE [Suspect]
     Indication: URINARY TRACT INFECTION
     Route: 048
  2. FLUCONAZOLE [Suspect]
     Indication: ORAL CANDIDIASIS

REACTIONS (7)
  - BURNING MOUTH SYNDROME [None]
  - DISABILITY [None]
  - EATING DISORDER [None]
  - EMOTIONAL DISORDER [None]
  - EMOTIONAL DISTRESS [None]
  - LOSS OF EMPLOYMENT [None]
  - SPEECH DISORDER [None]
